FAERS Safety Report 21629922 (Version 1)
Quarter: 2022Q4

REPORT INFORMATION
  Report Type: Report from Study
  Country: FR (occurrence: FR)
  Receive Date: 20221122
  Receipt Date: 20221122
  Transmission Date: 20230113
  Serious: Yes (Disabling)
  Sender: FDA-Public Use
  Company Number: FR-MYLANLABS-2022M1131435

PATIENT

DRUGS (2)
  1. CISPLATIN [Suspect]
     Active Substance: CISPLATIN
     Indication: Hepatoblastoma
     Dosage: 80 MILLIGRAM/SQ. METER, Q3W (SIOPEL 3 STANDARD RISK (PLADO) CHEMOTHERAPY REGIMEN...
     Route: 042
  2. DOXORUBICIN [Suspect]
     Active Substance: DOXORUBICIN
     Indication: Hepatoblastoma
     Dosage: 60 MILLIGRAM/SQ. METER, Q2W...
     Route: 042

REACTIONS (2)
  - Deafness [Unknown]
  - Ototoxicity [Unknown]
